FAERS Safety Report 4270755-8 (Version None)
Quarter: 2004Q1

REPORT INFORMATION
  Report Type: 
  Country: None (occurrence: None)
  Receive Date: 20040114
  Receipt Date: 20031022
  Transmission Date: 20041129
  Serious: Yes (Hospitalization)
  Sender: FDA-Public Use
  Company Number: 349767

PATIENT
  Age: 24 Year
  Sex: Male

DRUGS (1)
  1. ROACCUTANE [Suspect]
     Route: 048

REACTIONS (2)
  - DELIRIUM [None]
  - SCHIZOPHRENIA [None]
